FAERS Safety Report 17261533 (Version 2)
Quarter: 2020Q1

REPORT INFORMATION
  Report Type: Spontaneous
  Country: PT (occurrence: PT)
  Receive Date: 20200113
  Receipt Date: 20200120
  Transmission Date: 20200409
  Serious: Yes (Disabling, Other)
  Sender: FDA-Public Use
  Company Number: PT-MYLANLABS-2019M1096624

PATIENT
  Age: 61 Year
  Sex: Male

DRUGS (6)
  1. CALCIUM CARBONATE. [Concomitant]
     Active Substance: CALCIUM CARBONATE
     Indication: PATHOLOGICAL FRACTURE PROPHYLAXIS
  2. ALENDRONATE [Suspect]
     Active Substance: ALENDRONATE SODIUM
     Indication: LUMBAR VERTEBRAL FRACTURE
  3. CALCIUM CARBONATE. [Concomitant]
     Active Substance: CALCIUM CARBONATE
     Indication: LUMBAR VERTEBRAL FRACTURE
     Dosage: 1500 MILLIGRAM, QD
     Route: 065
     Dates: start: 2015
  4. ALENDRONATE [Suspect]
     Active Substance: ALENDRONATE SODIUM
     Indication: PATHOLOGICAL FRACTURE PROPHYLAXIS
     Dosage: 70 MILLIGRAM, QW
     Route: 065
     Dates: start: 2015
  5. CHOLECALCIFEROL [Concomitant]
     Active Substance: CHOLECALCIFEROL
     Indication: PATHOLOGICAL FRACTURE PROPHYLAXIS
     Dosage: 400 INTERNATIONAL UNIT, QD
     Route: 065
     Dates: start: 2015
  6. CHOLECALCIFEROL [Concomitant]
     Active Substance: CHOLECALCIFEROL
     Indication: LUMBAR VERTEBRAL FRACTURE

REACTIONS (5)
  - Tibia fracture [Unknown]
  - Product use issue [Unknown]
  - Bone pain [Unknown]
  - Bone density decreased [Unknown]
  - Atypical fracture [Unknown]

NARRATIVE: CASE EVENT DATE: 2015
